FAERS Safety Report 7964252-3 (Version None)
Quarter: 2011Q4

REPORT INFORMATION
  Report Type: 
  Country: None (occurrence: None)
  Receive Date: 20111208
  Receipt Date: 20111118
  Transmission Date: 20120403
  Serious: No
  Sender: FDA-Public Use
  Company Number: US-BAYER-2011-112183

PATIENT
  Age: 21 Year
  Sex: Female

DRUGS (1)
  1. MIRENA [Suspect]
     Indication: CONTRACEPTION
     Dosage: UNK
     Dates: start: 20111011, end: 20111011

REACTIONS (6)
  - DEVICE DIFFICULT TO USE [None]
  - POST PROCEDURAL DISCOMFORT [None]
  - MEDICAL DEVICE COMPLICATION [None]
  - PRESYNCOPE [None]
  - EMOTIONAL DISTRESS [None]
  - PROCEDURAL PAIN [None]
